FAERS Safety Report 15889233 (Version 1)
Quarter: 2019Q1

REPORT INFORMATION
  Report Type: Spontaneous
  Country: US (occurrence: US)
  Receive Date: 20190130
  Receipt Date: 20190130
  Transmission Date: 20190417
  Serious: Yes (Death)
  Sender: FDA-Public Use
  Company Number: US-PFIZER INC-2019003687

PATIENT
  Age: 72 Year
  Sex: Female
  Weight: 56.7 kg

DRUGS (5)
  1. FLUCONAZOLE. [Concomitant]
     Active Substance: FLUCONAZOLE
     Indication: ANTI-INFECTIVE THERAPY
     Dosage: 150 MG,  1 T NOW AND MAY REPEAT IN 3 DAYS
     Route: 048
  2. LYRICA [Suspect]
     Active Substance: PREGABALIN
     Indication: NEURALGIA
     Dosage: 100 MG, 5 TIMES A DAY
     Route: 048
  3. LYRICA [Suspect]
     Active Substance: PREGABALIN
     Indication: NEUROPATHY PERIPHERAL
  4. MEDROL [Concomitant]
     Active Substance: METHYLPREDNISOLONE
     Indication: WHEEZING
     Dosage: ONE TO TWO TABLETS AS DIRECTED PO X6 DAYS
     Route: 048
  5. LEVOTHYROXINE. [Concomitant]
     Active Substance: LEVOTHYROXINE
     Indication: HORMONE THERAPY
     Dosage: 88 UG, DAILY
     Route: 048

REACTIONS (2)
  - Parkinson^s disease [Fatal]
  - Off label use [Unknown]
